FAERS Safety Report 7222281-1 (Version None)
Quarter: 2011Q1

REPORT INFORMATION
  Report Type: 
  Country: None (occurrence: None)
  Receive Date: 20110103
  Receipt Date: 20101217
  Transmission Date: 20110831
  Serious: Yes (Hospitalization)
  Sender: FDA-Public Use
  Company Number: 1000017942

PATIENT
  Age: 84 Year
  Sex: Female

DRUGS (3)
  1. ALDACTONE [Suspect]
     Dosage: 1 DF (1 DOSAGE FORMS, 1 IN 1 D), ORAL
     Route: 048
     Dates: start: 20040101, end: 20101101
  2. CITALOPRAM HYDROBROMIDE [Suspect]
     Dosage: ORAL
     Route: 048
  3. PANTOPRAZOLE SODIUM [Suspect]
     Dosage: 1 DF (1 DOSAGE FORMS,1 N 1 D), ORAL
     Route: 048

REACTIONS (2)
  - EOSINOPHILIA [None]
  - PEMPHIGOID [None]
